FAERS Safety Report 9643960 (Version 2)
Quarter: 2013Q4

REPORT INFORMATION
  Report Type: Spontaneous
  Country: US (occurrence: US)
  Receive Date: 20131024
  Receipt Date: 20131122
  Transmission Date: 20140711
  Serious: Yes (Other)
  Sender: FDA-Public Use
  Company Number: US-PFIZER INC-2013303257

PATIENT
  Age: 44 Year
  Sex: Male

DRUGS (3)
  1. LYRICA [Suspect]
     Dosage: 150 MG, 2X/DAY
  2. TRAMADOL [Concomitant]
     Dosage: UNK
  3. ZANAFLEX [Concomitant]
     Dosage: UNK

REACTIONS (3)
  - Testis cancer [Unknown]
  - Sluggishness [Unknown]
  - Fatigue [Unknown]
